FAERS Safety Report 5932909-1 (Version None)
Quarter: 2008Q4

REPORT INFORMATION
  Report Type: 
  Country: None (occurrence: None)
  Receive Date: 20081023
  Receipt Date: 20081010
  Transmission Date: 20090506
  Serious: Yes (Other)
  Sender: FDA-Public Use
  Company Number: 2008BI027533

PATIENT
  Age: 46 Year
  Sex: Female

DRUGS (1)
  1. TYSABRI [Suspect]
     Indication: MULTIPLE SCLEROSIS
     Dates: start: 20080201, end: 20080701

REACTIONS (8)
  - ARTHRALGIA [None]
  - BLOOD IMMUNOGLOBULIN G DECREASED [None]
  - CONDITION AGGRAVATED [None]
  - GAIT DISTURBANCE [None]
  - MYALGIA [None]
  - VENOUS THROMBOSIS [None]
  - VIRAL INFECTION [None]
  - VISUAL IMPAIRMENT [None]
